FAERS Safety Report 7710262-0 (Version None)
Quarter: 2011Q3

REPORT INFORMATION
  Report Type: 
  Country: None (occurrence: None)
  Receive Date: 20110825
  Receipt Date: 20110822
  Transmission Date: 20111222
  Serious: Yes (Other)
  Sender: FDA-Public Use
  Company Number: FR-BRISTOL-MYERS SQUIBB COMPANY-15997687

PATIENT
  Age: 21 Year
  Sex: Female

DRUGS (4)
  1. LITHIUM CARBONATE [Concomitant]
     Route: 048
  2. TRAZODONE HCL [Concomitant]
  3. OXAZEPAM [Concomitant]
     Route: 048
  4. ABILIFY [Suspect]
     Route: 048
     Dates: start: 20110524, end: 20110610

REACTIONS (4)
  - TREMOR [None]
  - HOT FLUSH [None]
  - AKATHISIA [None]
  - ANXIETY [None]
